FAERS Safety Report 9354425 (Version 6)
Quarter: 2014Q2

REPORT INFORMATION
  Report Type: Spontaneous
  Country: JP (occurrence: JP)
  Receive Date: 20130618
  Receipt Date: 20140402
  Transmission Date: 20141212
  Serious: Yes (Death, Hospitalization, Other)
  Sender: FDA-Public Use
  Company Number: JP-GILEAD-2013-0077354

PATIENT
  Age: 66 Year
  Sex: Male

DRUGS (30)
  1. HEPSERA [Suspect]
     Indication: HEPATIC CIRRHOSIS
     Dosage: 10 MG, QD
     Route: 048
     Dates: start: 200807, end: 201306
  2. HEPSERA [Suspect]
     Indication: CHRONIC HEPATITIS B
  3. ZEFIX                              /01221401/ [Concomitant]
     Indication: HEPATIC CIRRHOSIS
     Dosage: 100 MG, QD
     Route: 048
  4. ZEFIX                              /01221401/ [Concomitant]
     Dosage: 100MG PER DAY
     Route: 048
  5. MEVALOTIN [Concomitant]
     Indication: HYPERLIPIDAEMIA
     Route: 048
  6. MEVALOTIN [Concomitant]
     Route: 048
  7. MEVALOTIN [Concomitant]
     Route: 048
  8. MEVALOTIN [Concomitant]
     Route: 048
  9. NORVASC [Concomitant]
     Indication: HYPERLIPIDAEMIA
     Route: 048
  10. NORVASC [Concomitant]
     Route: 048
  11. NORVASC [Concomitant]
     Route: 048
  12. NORVASC [Concomitant]
     Route: 048
  13. DIOVAN [Concomitant]
     Indication: HYPERLIPIDAEMIA
     Route: 048
  14. DIOVAN [Concomitant]
     Route: 048
  15. DIOVAN [Concomitant]
     Route: 048
  16. DIOVAN [Concomitant]
     Route: 048
  17. BONOTEO [Concomitant]
     Indication: OSTEOPOROSIS
     Dosage: UNK
     Route: 048
  18. BONOTEO [Concomitant]
     Route: 048
  19. BONOTEO [Concomitant]
     Route: 048
  20. BONOTEO [Concomitant]
     Route: 048
  21. FUROSEMIDE [Concomitant]
     Indication: ASCITES
     Route: 048
  22. FUROSEMIDE [Concomitant]
     Route: 048
  23. FUROSEMIDE [Concomitant]
     Route: 048
  24. FUROSEMIDE [Concomitant]
     Route: 048
  25. ALDACTONE A [Concomitant]
     Indication: ASCITES
     Dosage: UNK
     Route: 048
  26. ALDACTONE A [Concomitant]
     Route: 048
  27. ALDACTONE A [Concomitant]
     Route: 048
  28. ALDACTONE A [Concomitant]
     Route: 048
  29. CHINESE MEDICINE [Concomitant]
     Indication: ASCITES
     Route: 048
  30. CHINESE MEDICINE [Concomitant]
     Route: 048

REACTIONS (18)
  - Post procedural infection [Fatal]
  - Duodenal perforation [Recovered/Resolved]
  - Duodenal ulcer haemorrhage [Unknown]
  - Clostridium difficile colitis [Unknown]
  - Bone density decreased [Unknown]
  - Urine phosphorus decreased [Unknown]
  - Arthralgia [Unknown]
  - Urinary tract infection [Unknown]
  - Fanconi syndrome acquired [Not Recovered/Not Resolved]
  - Pelvic fracture [Recovered/Resolved]
  - Glucose urine present [Unknown]
  - Renal tubular acidosis [Unknown]
  - Osteomalacia [Unknown]
  - Abdominal pain [Unknown]
  - Hypokalaemia [Unknown]
  - Protein urine present [Unknown]
  - Hypophosphataemia [Not Recovered/Not Resolved]
  - Metabolic acidosis [Not Recovered/Not Resolved]
